FAERS Safety Report 5216100-2 (Version None)
Quarter: 2007Q1

REPORT INFORMATION
  Report Type: 
  Country: None (occurrence: None)
  Receive Date: 20070123
  Receipt Date: 20070109
  Transmission Date: 20070707
  Serious: No
  Sender: FDA-Public Use
  Company Number: US-ELI_LILLY_AND_COMPANY-US200612003560

PATIENT
  Age: 25 Year
  Sex: Male
  Weight: 115.65 kg

DRUGS (6)
  1. CYMBALTA [Suspect]
     Indication: DEPRESSION
     Dosage: 60 MG, UNK
     Dates: start: 20050826, end: 20061120
  2. CYMBALTA [Suspect]
     Dosage: 30 MG, UNK
     Dates: start: 20061120, end: 20061201
  3. ASA TABS [Concomitant]
     Dosage: 81 MG, UNK
  4. MULTI-VITAMIN [Concomitant]
  5. EFFEXOR [Concomitant]
     Indication: DEPRESSION
     Dates: end: 20050826
  6. TYLENOL                                 /USA/ [Concomitant]

REACTIONS (10)
  - ABDOMINAL PAIN [None]
  - ALANINE AMINOTRANSFERASE INCREASED [None]
  - DIZZINESS [None]
  - DRUG INEFFECTIVE [None]
  - FATIGUE [None]
  - GASTROENTERITIS [None]
  - MYALGIA [None]
  - NAUSEA [None]
  - NIGHT SWEATS [None]
  - VIRAL INFECTION [None]
